FAERS Safety Report 7786967-2 (Version None)
Quarter: 2011Q3

REPORT INFORMATION
  Report Type: 
  Country: None (occurrence: None)
  Receive Date: 20110929
  Receipt Date: 20110923
  Transmission Date: 20111222
  Serious: Yes (Other)
  Sender: FDA-Public Use
  Company Number: US-PFIZER INC-2011227145

PATIENT
  Sex: Female

DRUGS (4)
  1. KETOROLAC TROMETHAMINE [Suspect]
     Dosage: UNK
  2. CYCLOSPORINE [Suspect]
     Dosage: UNK
  3. XALATAN [Suspect]
     Indication: GLAUCOMA
     Dosage: UNK
     Dates: end: 20110101
  4. FLUORESCEIN [Suspect]
     Dosage: UNK

REACTIONS (1)
  - DERMATITIS CONTACT [None]
